FAERS Safety Report 12395109 (Version 27)
Quarter: 2018Q3

REPORT INFORMATION
  Report Type: Spontaneous
  Country: US (occurrence: US)
  Receive Date: 20160523
  Receipt Date: 20180828
  Transmission Date: 20181010
  Serious: Yes (Hospitalization, Other)
  Sender: FDA-Public Use
  Company Number: US-ACTELION-A-NJ2016-136125

PATIENT
  Age: 48 Year
  Sex: Female
  Weight: 63.49 kg

DRUGS (44)
  1. AMITRIPTYLINE [Concomitant]
     Active Substance: AMITRIPTYLINE
  2. BIOTIN [Concomitant]
     Active Substance: BIOTIN
  3. REQUIP [Concomitant]
     Active Substance: ROPINIROLE HYDROCHLORIDE
  4. MORPHINE HYDROCHLORIDE [Concomitant]
     Active Substance: MORPHINE HYDROCHLORIDE
  5. TRAMADOL. [Concomitant]
     Active Substance: TRAMADOL
  6. ALPRAZOLAM. [Concomitant]
     Active Substance: ALPRAZOLAM
  7. IRON [Concomitant]
     Active Substance: IRON
  8. INVANZ [Concomitant]
     Active Substance: ERTAPENEM SODIUM
  9. ADCIRCA [Concomitant]
     Active Substance: TADALAFIL
  10. LEVOTHYROXINE. [Concomitant]
     Active Substance: LEVOTHYROXINE
  11. OMEPRAZOLE. [Concomitant]
     Active Substance: OMEPRAZOLE
  12. CALCIUM ACETAT [Concomitant]
     Active Substance: CALCIUM ACETATE
  13. ACIPHEX [Concomitant]
     Active Substance: RABEPRAZOLE SODIUM
  14. UPTRAVI [Suspect]
     Active Substance: SELEXIPAG
     Dosage: 1000 MCG, BID
     Route: 048
     Dates: start: 20160307
  15. LETAIRIS [Suspect]
     Active Substance: AMBRISENTAN
     Indication: PULMONARY ARTERIAL HYPERTENSION
     Dosage: 10 MG, QD
     Route: 048
     Dates: start: 20110208
  16. VITAMIN B12 [Concomitant]
     Active Substance: CYANOCOBALAMIN
  17. FLUTICASONE. [Concomitant]
     Active Substance: FLUTICASONE
  18. OXYGEN. [Concomitant]
     Active Substance: OXYGEN
     Dosage: 2?3L, PER MIN
  19. TORSEMIDE. [Concomitant]
     Active Substance: TORSEMIDE
  20. RANITIDINE. [Concomitant]
     Active Substance: RANITIDINE
  21. ATIVAN [Concomitant]
     Active Substance: LORAZEPAM
  22. SINEMET [Concomitant]
     Active Substance: CARBIDOPA\LEVODOPA
  23. METHAMPHETAMINE [Concomitant]
     Active Substance: METHAMPHETAMINE
  24. UPTRAVI [Suspect]
     Active Substance: SELEXIPAG
     Indication: PULMONARY HYPERTENSION
     Dosage: 1600 MCG, BID
     Route: 048
  25. REMODULIN [Concomitant]
     Active Substance: TREPROSTINIL
  26. REVATIO [Concomitant]
     Active Substance: SILDENAFIL CITRATE
  27. MELOXICAM. [Concomitant]
     Active Substance: MELOXICAM
  28. DOCUSATE SODIUM. [Concomitant]
     Active Substance: DOCUSATE SODIUM
  29. ASA [Concomitant]
     Active Substance: ASPIRIN
  30. DIPHENHYDRAMINE. [Concomitant]
     Active Substance: DIPHENHYDRAMINE
  31. SIMVASTATIN. [Concomitant]
     Active Substance: SIMVASTATIN
  32. PROMETHAZINE [Concomitant]
     Active Substance: PROMETHAZINE\PROMETHAZINE HYDROCHLORIDE
  33. VITAMIN B COMPLEX [Concomitant]
     Active Substance: CYANOCOBALAMIN\DEXPANTHENOL\NIACINAMIDE\PYRIDOXINE HYDROCHLORIDE\RIBOFLAVIN 5^-PHOSPHATE SODIUM\THIAMINE HYDROCHLORIDE\VITAMIN B COMPLEX
  34. ORENITRAM [Suspect]
     Active Substance: TREPROSTINIL
     Indication: PULMONARY HYPERTENSION
     Dosage: 10 MG, TID
     Route: 048
     Dates: start: 20151229, end: 20160309
  35. XARELTO [Concomitant]
     Active Substance: RIVAROXABAN
  36. DIGOXIN. [Concomitant]
     Active Substance: DIGOXIN
  37. FERROUS GLUCONATE [Concomitant]
     Active Substance: FERROUS GLUCONATE
  38. KLOR?CON M20 [Concomitant]
     Active Substance: POTASSIUM CHLORIDE
  39. UPTRAVI [Suspect]
     Active Substance: SELEXIPAG
     Dosage: UNK
     Route: 048
  40. ASCORBIC ACID. [Concomitant]
     Active Substance: ASCORBIC ACID
  41. CELEBREX [Concomitant]
     Active Substance: CELECOXIB
  42. METOLAZONE. [Concomitant]
     Active Substance: METOLAZONE
  43. ONDANSETRON HCL [Concomitant]
     Active Substance: ONDANSETRON HYDROCHLORIDE
  44. SPIRONOLACTONE. [Concomitant]
     Active Substance: SPIRONOLACTONE

REACTIONS (40)
  - Renal failure [Unknown]
  - Ascites [Unknown]
  - Syncope [Not Recovered/Not Resolved]
  - Incontinence [Unknown]
  - Anxiety [Unknown]
  - Pain [Unknown]
  - Dyspnoea [Unknown]
  - Feeling abnormal [Unknown]
  - Cardiac failure [Unknown]
  - Pleural effusion [Unknown]
  - Pulmonary pain [Unknown]
  - Spinal osteoarthritis [Unknown]
  - Nasopharyngitis [Unknown]
  - Rash [Unknown]
  - Weight increased [Unknown]
  - Condition aggravated [Unknown]
  - Loss of consciousness [Unknown]
  - Ear haemorrhage [Unknown]
  - Cerumen removal [Unknown]
  - Troponin increased [Unknown]
  - Hypotension [Unknown]
  - Seizure [Unknown]
  - Spinal disorder [Unknown]
  - Spinal pain [Unknown]
  - Dyspnoea exertional [Unknown]
  - Vomiting [Unknown]
  - Fall [Unknown]
  - Localised oedema [Unknown]
  - Joint dislocation [Unknown]
  - Oedema peripheral [Unknown]
  - Musculoskeletal pain [Unknown]
  - Dizziness [Unknown]
  - Abdominal discomfort [Unknown]
  - Bladder operation [Recovered/Resolved]
  - Muscle spasms [Unknown]
  - Chest pain [Unknown]
  - Otorrhoea [Unknown]
  - Presyncope [Unknown]
  - Pulmonary arterial hypertension [Unknown]
  - Palpitations [Unknown]

NARRATIVE: CASE EVENT DATE: 20160421
